FAERS Safety Report 6150595-5 (Version None)
Quarter: 2009Q2

REPORT INFORMATION
  Report Type: 
  Country: None (occurrence: None)
  Receive Date: 20090409
  Receipt Date: 20090403
  Transmission Date: 20091009
  Serious: Yes (Hospitalization, Other)
  Sender: FDA-Public Use
  Company Number: IL-ROXANE LABORATORIES, INC.-2009-RO-00339RO

PATIENT
  Age: 54 Year
  Sex: Male

DRUGS (10)
  1. MORPHINE [Suspect]
     Indication: PAIN
     Route: 008
  2. MORPHINE [Suspect]
     Indication: ANAESTHESIA
     Route: 042
  3. MORPHINE [Suspect]
     Route: 042
  4. OXYCODONE HCL [Suspect]
     Indication: ALLODYNIA
     Dosage: 80MG
  5. OXYCODONE HCL [Suspect]
     Indication: PAIN
  6. OXYCODONE HCL [Suspect]
     Route: 048
  7. ROPIVACAINE [Suspect]
     Indication: PAIN
     Route: 008
  8. FENTANYL [Suspect]
     Indication: PAIN
     Route: 008
  9. BUPIVACAINE [Suspect]
     Indication: GENERAL ANAESTHESIA
  10. KETAMINE HCL [Suspect]
     Indication: PAIN
     Route: 042

REACTIONS (5)
  - ABNORMAL BEHAVIOUR [None]
  - CATHETER SITE ERYTHEMA [None]
  - DRUG INEFFECTIVE [None]
  - DRUG TOLERANCE [None]
  - PYREXIA [None]
